FAERS Safety Report 6270510-3 (Version None)
Quarter: 2009Q3

REPORT INFORMATION
  Report Type: 
  Country: None (occurrence: None)
  Receive Date: 20090715
  Receipt Date: 20090423
  Transmission Date: 20100115
  Serious: Yes (Hospitalization)
  Sender: FDA-Public Use
  Company Number: DL2009232

PATIENT
  Age: 24 Year
  Sex: Female

DRUGS (4)
  1. MIFEPRISTONE TABLETS, 200 MG (DANCO LABS) [Suspect]
     Indication: ABORTION INDUCED
     Dosage: 200 MG, ORAL
     Route: 048
     Dates: start: 20090304
  2. MISOPROSTOL [Suspect]
     Dosage: 800 MCG, BUCCAL, 200 MCG BUCCAL
     Route: 002
     Dates: start: 20090305
  3. MISOPROSTOL [Suspect]
     Dosage: 800 MCG, BUCCAL, 200 MCG BUCCAL
     Route: 002
     Dates: start: 20090324
  4. DOXYCYCLINE [Concomitant]

REACTIONS (2)
  - ANAEMIA [None]
  - HAEMORRHAGE [None]
